FAERS Safety Report 8726544 (Version 4)
Quarter: 2012Q4

REPORT INFORMATION
  Report Type: Spontaneous
  Country: JP (occurrence: None)
  Receive Date: 20120730
  Receipt Date: 20120920
  Transmission Date: 20130627
  Serious: Yes (Hospitalization)
  Sender: FDA-Public Use
  Company Number: ABR_00536_2012

PATIENT
  Age: 10 Year
  Sex: Male
  Weight: 28.6 kg

DRUGS (3)
  1. ERYTHROMYCIN [Suspect]
     Indication: PNEUMONIA
     Dosage: (DF)
     Route: 048
     Dates: start: 20110825
  2. CLARITHROMYCIN (CLARITHROMYCIN) [Suspect]
     Indication: PNEUMONIA
     Dosage: (DF)
     Route: 048
     Dates: start: 20110824, end: 20110825
  3. AZITHROMYCIN [Suspect]
     Indication: PNEUMONIA
     Dosage: (DF)
     Route: 048
     Dates: start: 20110821, end: 20110824

REACTIONS (3)
  - Stevens-Johnson syndrome [None]
  - Pneumonia mycoplasmal [None]
  - General physical health deterioration [None]
